FAERS Safety Report 7197118-X (Version None)
Quarter: 2010Q4

REPORT INFORMATION
  Report Type: 
  Country: None (occurrence: None)
  Receive Date: 20101224
  Receipt Date: 20101213
  Transmission Date: 20110411
  Serious: Yes (Hospitalization)
  Sender: FDA-Public Use
  Company Number: PHHY2010LT84214

PATIENT
  Age: 27 Year
  Sex: Male

DRUGS (2)
  1. LEPONEX [Suspect]
     Dosage: 10 OR 20 TABLETS
  2. PARKOPAN [Concomitant]

REACTIONS (2)
  - INTENTIONAL OVERDOSE [None]
  - SUICIDE ATTEMPT [None]
